FAERS Safety Report 6727162-5 (Version None)
Quarter: 2010Q2

REPORT INFORMATION
  Report Type: 
  Country: None (occurrence: None)
  Receive Date: 20100512
  Receipt Date: 20100129
  Transmission Date: 20101027
  Serious: No
  Sender: FDA-Public Use
  Company Number: 1000011585

PATIENT
  Age: 43 Year
  Sex: Female

DRUGS (6)
  1. SAVELLA [Suspect]
     Indication: FIBROMYALGIA
     Dosage: 12.5 MG (12.5 MG,1 IN 1 D), ORAL
     Route: 048
     Dates: start: 20100119, end: 20100120
  2. SAVELLA [Suspect]
     Indication: FIBROMYALGIA
     Dosage: 12.5 MG (12.5 MG,1 IN 1 D), ORAL
     Route: 048
     Dates: start: 20100121
  3. TRAMADOL HCL [Concomitant]
  4. PROPRANOLOL [Concomitant]
  5. CLONAZEPAM [Concomitant]
  6. ZYRTEC [Concomitant]

REACTIONS (3)
  - ARTHRALGIA [None]
  - DIARRHOEA [None]
  - JOINT SWELLING [None]
